FAERS Safety Report 4740629-4 (Version None)
Quarter: 2005Q3

REPORT INFORMATION
  Report Type: 
  Country: None (occurrence: None)
  Receive Date: 20050810
  Receipt Date: 20050310
  Transmission Date: 20060218
  Serious: Yes (Hospitalization)
  Sender: FDA-Public Use
  Company Number: US-MERCK-0503USA02018

PATIENT
  Age: 59 Year
  Sex: Female
  Weight: 70 kg

DRUGS (34)
  1. VIOXX [Suspect]
     Indication: OSTEOARTHRITIS
     Route: 048
     Dates: start: 20001001, end: 20040101
  2. VIOXX [Suspect]
     Route: 048
     Dates: start: 20010917, end: 20040101
  3. VIOXX [Suspect]
     Route: 048
     Dates: start: 20001221
  4. FLUOXETINE [Concomitant]
     Route: 065
  5. PREVACID [Concomitant]
     Indication: GASTROOESOPHAGEAL REFLUX DISEASE
     Route: 065
  6. PLAVIX [Concomitant]
     Indication: CEREBROVASCULAR ACCIDENT
     Route: 065
     Dates: start: 20000601
  7. ALBUTEROL [Concomitant]
     Indication: ASTHMA
     Route: 065
  8. TEMAZEPAM [Concomitant]
     Indication: SLEEP DISORDER THERAPY
     Route: 065
     Dates: start: 19980901
  9. TEMAZEPAM [Concomitant]
     Indication: GENERALISED ANXIETY DISORDER
     Route: 065
     Dates: start: 19980901
  10. ALLEGRA [Concomitant]
     Indication: HYPERSENSITIVITY
     Route: 065
  11. DETROL [Concomitant]
     Route: 065
  12. ASACOL [Concomitant]
     Indication: COLITIS ULCERATIVE
     Route: 065
  13. KLOR-CON [Concomitant]
     Route: 065
  14. COZAAR [Concomitant]
     Indication: HYPERTENSION
     Route: 065
     Dates: start: 19980505
  15. ADVAIR DISKUS 100/50 [Concomitant]
     Route: 065
  16. LASIX [Concomitant]
     Indication: OEDEMA PERIPHERAL
     Route: 065
     Dates: start: 19980501
  17. LASIX [Concomitant]
     Indication: HYPERTENSION
     Route: 065
     Dates: start: 19980501
  18. WELLBUTRIN [Concomitant]
     Indication: DEPRESSION
     Route: 065
     Dates: start: 20020101
  19. CARDIZEM [Concomitant]
     Indication: CARDIAC DISORDER
     Route: 065
     Dates: start: 20001016
  20. BUPROPION HYDROCHLORIDE [Concomitant]
     Route: 065
  21. RELAFEN [Concomitant]
     Indication: PAIN
     Route: 065
     Dates: start: 19980101, end: 20001001
  22. PROZAC [Concomitant]
     Indication: DEPRESSION
     Route: 065
     Dates: start: 19910101
  23. PREMPRO [Concomitant]
     Route: 065
  24. CLARITIN [Concomitant]
     Indication: HYPERSENSITIVITY
     Route: 065
  25. ARMOUR THYROID TABLETS [Concomitant]
     Indication: HYPOTHYROIDISM
     Route: 065
  26. POTASSIUM CHLORIDE [Concomitant]
     Route: 065
  27. K-DUR 10 [Concomitant]
     Route: 065
  28. CARTIA XT [Concomitant]
     Indication: CARDIAC DISORDER
     Route: 065
     Dates: start: 20001016
  29. MEDROXYPROGESTERONE ACETATE [Concomitant]
     Indication: HORMONE REPLACEMENT THERAPY
     Route: 065
  30. THEOPHYLLINE [Concomitant]
     Indication: ASTHMA
     Route: 065
     Dates: start: 19900101, end: 20031023
  31. LEVOTHROID [Concomitant]
     Route: 065
  32. UNIPHYL [Concomitant]
     Indication: ASTHMA
     Route: 065
     Dates: start: 19900101, end: 20010601
  33. PRINIVIL [Concomitant]
     Route: 048
  34. FUROSEMIDE [Concomitant]
     Route: 065
     Dates: start: 19980101

REACTIONS (16)
  - APRAXIA [None]
  - BREAST MICROCALCIFICATION [None]
  - CEREBROVASCULAR ACCIDENT [None]
  - COLITIS [None]
  - COLITIS ULCERATIVE [None]
  - DIARRHOEA HAEMORRHAGIC [None]
  - EMOTIONAL DISTRESS [None]
  - FALL [None]
  - GENERALISED ANXIETY DISORDER [None]
  - HEADACHE [None]
  - HYPERTENSION [None]
  - INTESTINAL HAEMORRHAGE [None]
  - LYMPHADENOPATHY [None]
  - OEDEMA PERIPHERAL [None]
  - SLEEP DISORDER [None]
  - WOUND [None]
